FAERS Safety Report 9181227 (Version 3)
Quarter: 2013Q2

REPORT INFORMATION
  Report Type: Spontaneous
  Country: US (occurrence: US)
  Receive Date: 20130322
  Receipt Date: 20130501
  Transmission Date: 20140414
  Serious: Yes (Other)
  Sender: FDA-Public Use
  Company Number: US-GENZYME-LEUK-1000339

PATIENT
  Sex: Male
  Weight: 104 kg

DRUGS (1)
  1. LEUKINE [Suspect]
     Indication: PROSTATE CANCER
     Dosage: 250 MCG, 90 VIALS
     Route: 065
     Dates: start: 20111114

REACTIONS (1)
  - Drug ineffective [Unknown]
